FAERS Safety Report 13840566 (Version 9)
Quarter: 2022Q2

REPORT INFORMATION
  Report Type: Spontaneous
  Country: US (occurrence: US)
  Receive Date: 20170807
  Receipt Date: 20220511
  Transmission Date: 20220721
  Serious: Yes (Death, Hospitalization, Other)
  Sender: FDA-Public Use
  Company Number: US-VIFOR (INTERNATIONAL) INC.-VIT-2017-08040

PATIENT
  Age: 90 Year
  Sex: Female
  Weight: 63.560 kg

DRUGS (15)
  1. VELTASSA [Suspect]
     Active Substance: PATIROMER
     Indication: Hyperkalaemia
     Route: 048
     Dates: start: 20160209
  2. VELTASSA [Suspect]
     Active Substance: PATIROMER
     Route: 048
     Dates: start: 20170523, end: 201906
  3. VELTASSA [Suspect]
     Active Substance: PATIROMER
     Route: 048
  4. VITAMIN D3 [Concomitant]
     Active Substance: CHOLECALCIFEROL
  5. SIMVASTATIN [Concomitant]
     Active Substance: SIMVASTATIN
  6. PANTOPRAZOLE SODIUM [Concomitant]
     Active Substance: PANTOPRAZOLE SODIUM
  7. OYSCO [Concomitant]
  8. NOVOLIN 70/30 [Concomitant]
     Active Substance: INSULIN HUMAN
     Dosage: 70/30
  9. NIFEDIPINE [Concomitant]
     Active Substance: NIFEDIPINE
  10. FUROSEMIDE [Concomitant]
     Active Substance: FUROSEMIDE
  11. ASPIRIN [Concomitant]
     Active Substance: ASPIRIN
  12. ALLOPURINOL [Concomitant]
     Active Substance: ALLOPURINOL
  13. ALENDRONATE SODIUM [Concomitant]
     Active Substance: ALENDRONATE SODIUM
  14. LISINOPRIL [Concomitant]
     Active Substance: LISINOPRIL
  15. KIONEX [Concomitant]
     Active Substance: SODIUM POLYSTYRENE SULFONATE

REACTIONS (13)
  - Death [Fatal]
  - Urinary tract infection [Unknown]
  - Emergency care [Unknown]
  - Physical deconditioning [Unknown]
  - Cardiac failure congestive [Unknown]
  - Chronic kidney disease [Unknown]
  - Dehydration [Unknown]
  - Blood potassium increased [Unknown]
  - Blood potassium abnormal [Recovered/Resolved]
  - Fluid retention [Recovered/Resolved]
  - Nausea [Unknown]
  - Illness [Recovered/Resolved]
  - Product dose omission issue [Unknown]

NARRATIVE: CASE EVENT DATE: 20170101
